FAERS Safety Report 12808990 (Version 6)
Quarter: 2018Q4

REPORT INFORMATION
  Report Type: Report from Study
  Country: US (occurrence: US)
  Receive Date: 20161004
  Receipt Date: 20181129
  Transmission Date: 20190204
  Serious: Yes (Hospitalization)
  Sender: FDA-Public Use
  Company Number: US-ACTELION-A-US2016-142996

PATIENT
  Age: 71 Year
  Sex: Male
  Weight: 45.35 kg

DRUGS (1)
  1. TRACLEER [Suspect]
     Active Substance: BOSENTAN
     Indication: PULMONARY ARTERIAL HYPERTENSION
     Dosage: 125 MG, BID
     Route: 048

REACTIONS (13)
  - Urinary tract infection [Recovered/Resolved]
  - Pulmonary oedema [Unknown]
  - Dyspnoea [Unknown]
  - Pyrexia [Unknown]
  - Weight decreased [Unknown]
  - Ascites [Recovered/Resolved]
  - Infection [Unknown]
  - Pneumonia [Unknown]
  - Peripheral swelling [Unknown]
  - Fluid retention [Unknown]
  - Nasal congestion [Unknown]
  - Kidney infection [Unknown]
  - Renal impairment [Unknown]
